FAERS Safety Report 25571301 (Version 2)
Quarter: 2025Q3

REPORT INFORMATION
  Report Type: Report from Study
  Country: US (occurrence: US)
  Receive Date: 20250717
  Receipt Date: 20250820
  Transmission Date: 20251021
  Serious: No
  Sender: DR REDDYS
  Company Number: US-DRL-USA-USA/2025/06/009530

PATIENT
  Sex: Female
  Weight: 78.47 kg

DRUGS (1)
  1. JAVYGTOR [Suspect]
     Active Substance: SAPROPTERIN DIHYDROCHLORIDE
     Indication: Phenylketonuria
     Dosage: TAKE FIFTEEN 100 MG TABLETS ONCE DAILY, AS DIRECTED, WITH A MEAL, FOR A TOTAL DOSE OF 1500 MG PER DA
     Route: 048

REACTIONS (2)
  - Maternal exposure during pregnancy [Unknown]
  - Delivery [Unknown]
